FAERS Safety Report 8006891-X (Version None)
Quarter: 2011Q4

REPORT INFORMATION
  Report Type: 
  Country: None (occurrence: None)
  Receive Date: 20111227
  Receipt Date: 20111215
  Transmission Date: 20120403
  Serious: Yes (Other)
  Sender: FDA-Public Use
  Company Number: CA-JNJFOC-20111207449

PATIENT
  Sex: Female

DRUGS (1)
  1. REMICADE [Suspect]
     Indication: CROHN'S DISEASE
     Dosage: CURRENT DOSE OF THE PATIENT WAS 400 MG AND WAS NOT ON ANY CONCOMITANT MEDICATIONS
     Route: 042
     Dates: start: 20110601

REACTIONS (1)
  - CROHN'S DISEASE [None]
